FAERS Safety Report 11307105 (Version 4)
Quarter: 2015Q3

REPORT INFORMATION
  Report Type: Spontaneous
  Country: US (occurrence: US)
  Receive Date: 20150723
  Receipt Date: 20150911
  Transmission Date: 20151125
  Serious: Yes (Death, Hospitalization)
  Sender: FDA-Public Use
  Company Number: US-JNJFOC-20150714899

PATIENT
  Age: 70 Year
  Sex: Male
  Weight: 63 kg

DRUGS (6)
  1. KLOR-CON [Concomitant]
     Active Substance: POTASSIUM CHLORIDE
  2. METFORMIN [Concomitant]
     Active Substance: METFORMIN HYDROCHLORIDE
  3. TRIAMTERENE. [Concomitant]
     Active Substance: TRIAMTERENE
  4. IMBRUVICA [Suspect]
     Active Substance: IBRUTINIB
     Indication: MANTLE CELL LYMPHOMA
     Route: 048
     Dates: start: 20140225
  5. LORTAB [Concomitant]
     Active Substance: ACETAMINOPHEN\HYDROCODONE BITARTRATE
  6. METOPROLOL [Concomitant]
     Active Substance: METOPROLOL

REACTIONS (6)
  - Hypomagnesaemia [Recovering/Resolving]
  - Asthenia [Recovering/Resolving]
  - Confusional state [Recovering/Resolving]
  - Hypochloraemia [Recovering/Resolving]
  - Death [Fatal]
  - Urinary tract infection [Recovering/Resolving]

NARRATIVE: CASE EVENT DATE: 20150629
